FAERS Safety Report 16060891 (Version 1)
Quarter: 2019Q1

REPORT INFORMATION
  Report Type: Spontaneous
  Country: US (occurrence: US)
  Receive Date: 20190312
  Receipt Date: 20190312
  Transmission Date: 20190418
  Serious: Yes (Other)
  Sender: FDA-Public Use
  Company Number: US-SA-2019SA063151

PATIENT
  Sex: Female

DRUGS (1)
  1. NASACORT ALLERGY 24HR [Suspect]
     Active Substance: TRIAMCINOLONE ACETONIDE
     Indication: OTORRHOEA
     Dosage: 55 UG, QD, 1 SPRAY IN THE LEFT NOSTRIL PER DAY
     Route: 045
     Dates: start: 201807, end: 20190304

REACTIONS (1)
  - Cardiac flutter [Unknown]
